FAERS Safety Report 19794679 (Version 1)
Quarter: 2021Q3

REPORT INFORMATION
  Report Type: Spontaneous
  Country: US (occurrence: US)
  Receive Date: 20210906
  Receipt Date: 20210906
  Transmission Date: 20211014
  Serious: No
  Sender: FDA-Public Use
  Company Number: US-009507513-2109USA000986

PATIENT
  Age: 51 Year
  Sex: Male

DRUGS (5)
  1. TEMODAR [Suspect]
     Active Substance: TEMOZOLOMIDE
     Indication: NEUROENDOCRINE CARCINOMA METASTATIC
     Route: 048
  2. LANREOTIDE [Concomitant]
     Active Substance: LANREOTIDE
     Indication: NEUROENDOCRINE CARCINOMA METASTATIC
     Dosage: WITH AND WITHOUT SHORT?ACTING OCTREOTIDE
  3. SUNITINIB [Concomitant]
     Active Substance: SUNITINIB
     Indication: NEUROENDOCRINE CARCINOMA METASTATIC
  4. EVEROLIMUS. [Concomitant]
     Active Substance: EVEROLIMUS
     Indication: NEUROENDOCRINE CARCINOMA METASTATIC
  5. CAPECITABINE. [Concomitant]
     Active Substance: CAPECITABINE
     Indication: NEUROENDOCRINE CARCINOMA METASTATIC

REACTIONS (1)
  - Product use in unapproved indication [Unknown]
